FAERS Safety Report 8965993 (Version 2)
Quarter: 2013Q1

REPORT INFORMATION
  Report Type: Spontaneous
  Country: GB (occurrence: GB)
  Receive Date: 20121217
  Receipt Date: 20130219
  Transmission Date: 20140127
  Serious: Yes (Other)
  Sender: FDA-Public Use
  Company Number: GB-MPIJNJ-2012-08816

PATIENT
  Age: 65 Year
  Sex: 0
  Weight: 50 kg

DRUGS (5)
  1. VELCADE [Suspect]
     Indication: PLASMA CELL MYELOMA
     Dosage: UNK UNK, CYCLIC
     Route: 058
     Dates: start: 20120105, end: 20120217
  2. DEXAMETHASONE [Concomitant]
     Indication: PLASMA CELL MYELOMA
     Dosage: 20 MG, UNK
     Dates: start: 20120105, end: 20120727
  3. CYCLOPHOSPHAMIDE [Concomitant]
     Indication: PLASMA CELL MYELOMA
     Dosage: 500 MG, UNK
     Dates: start: 20120105, end: 20120727
  4. FLUCONAZOLE [Concomitant]
     Indication: PLASMA CELL MYELOMA
     Dosage: 50 MG, UNK
     Dates: start: 20120105, end: 20120727
  5. OMEPRAZOLE [Concomitant]
     Indication: PLASMA CELL MYELOMA
     Dosage: 20 MG, UNK
     Dates: start: 20120105, end: 20120727

REACTIONS (1)
  - Left ventricular failure [Not Recovered/Not Resolved]
